FAERS Safety Report 24066785 (Version 1)
Quarter: 2024Q3

REPORT INFORMATION
  Report Type: Spontaneous
  Country: BR (occurrence: BR)
  Receive Date: 20240709
  Receipt Date: 20240709
  Transmission Date: 20241017
  Serious: Yes (Death, Disabling, Other)
  Sender: PFIZER
  Company Number: BR-TAKEDA-2024TUS067303

PATIENT
  Age: 51 Year

DRUGS (3)
  1. BRENTUXIMAB VEDOTIN [Suspect]
     Active Substance: BRENTUXIMAB VEDOTIN
     Indication: Cutaneous T-cell lymphoma
     Dosage: UNK
     Route: 065
     Dates: start: 201811
  2. METHOTREXATE [Suspect]
     Active Substance: METHOTREXATE
     Indication: Cutaneous T-cell lymphoma
     Dosage: 3 GRAM
     Route: 065
     Dates: start: 202010
  3. CYTARABINE [Suspect]
     Active Substance: CYTARABINE
     Indication: Cutaneous T-cell lymphoma
     Dosage: UNK
     Route: 065
     Dates: start: 202010

REACTIONS (9)
  - Death [Fatal]
  - Blindness [Unknown]
  - Non-Hodgkin^s lymphoma [Unknown]
  - Neoplasm progression [Unknown]
  - Skin hypertrophy [Unknown]
  - Amnesia [Unknown]
  - Gait disturbance [Unknown]
  - Mass [Unknown]
  - Optic nerve disorder [Unknown]

NARRATIVE: CASE EVENT DATE: 20200901
